FAERS Safety Report 8614258-6 (Version None)
Quarter: 2012Q3

REPORT INFORMATION
  Report Type: 
  Country: None (occurrence: None)
  Receive Date: 20120813
  Receipt Date: 20120813
  Transmission Date: 20120928
  Serious: Yes (Hospitalization)
  Sender: FDA-Public Use
  Company Number: None

PATIENT
  Age: 78 Year
  Sex: Male
  Weight: 78.6 kg

DRUGS (1)
  1. CLINDAMYCIN [Suspect]
     Indication: INFECTION
     Dosage: 300 MG TID PO
     Route: 048
     Dates: start: 20120605, end: 20120705

REACTIONS (5)
  - DIARRHOEA [None]
  - CLOSTRIDIUM TEST POSITIVE [None]
  - DEHYDRATION [None]
  - BLOOD UREA INCREASED [None]
  - BLOOD CREATININE INCREASED [None]
